FAERS Safety Report 11853078 (Version 5)
Quarter: 2016Q1

REPORT INFORMATION
  Report Type: Report from Study
  Country: BE (occurrence: BE)
  Receive Date: 20151218
  Receipt Date: 20160119
  Transmission Date: 20160526
  Serious: Yes (Death, Hospitalization, Other)
  Sender: FDA-Public Use
  Company Number: BE-ABBVIE-15P-013-1354222-00

PATIENT
  Age: 85 Year
  Sex: Male

DRUGS (16)
  1. TRAZODONE [Concomitant]
     Active Substance: TRAZODONE HYDROCHLORIDE
     Dosage: AT 10PM
  2. LORMETAZEPAM [Concomitant]
     Active Substance: LORMETAZEPAM
     Dosage: AT 11:30 PM
  3. LORMETAZEPAM [Concomitant]
     Active Substance: LORMETAZEPAM
     Dosage: AT 1:30 AM
  4. ALPRAZOLAM. [Concomitant]
     Active Substance: ALPRAZOLAM
     Indication: PRODUCT USED FOR UNKNOWN INDICATION
  5. DUODOPA [Suspect]
     Active Substance: CARBIDOPA\LEVODOPA
     Dosage: AM=10ML; CD=3ML/HR DURING 16HRS; ED=3ML
     Route: 050
     Dates: start: 20160105
  6. DUODOPA [Suspect]
     Active Substance: CARBIDOPA\LEVODOPA
     Dosage: AM DOSE= 14ML, CONTIN DOSE= 3.9ML/H DURING 16HRS, EXTRA DOSE= 3ML
     Route: 050
     Dates: start: 20130313, end: 20151217
  7. DUODOPA [Suspect]
     Active Substance: CARBIDOPA\LEVODOPA
     Route: 050
     Dates: start: 20151217, end: 20151221
  8. TRAZODONE [Concomitant]
     Active Substance: TRAZODONE HYDROCHLORIDE
     Indication: PRODUCT USED FOR UNKNOWN INDICATION
     Dosage: FORM STRENGTH: 100MG; UNIT DOSE: 0.5 OR 1 TABLET
  9. LORMETAZEPAM [Concomitant]
     Active Substance: LORMETAZEPAM
     Indication: PRODUCT USED FOR UNKNOWN INDICATION
     Dosage: AT 11.45PM
  10. COMBODART [Concomitant]
     Active Substance: DUTASTERIDE\TAMSULOSIN
     Indication: PRODUCT USED FOR UNKNOWN INDICATION
     Dosage: AT 12.30PM
  11. PROLOPA [Concomitant]
     Active Substance: BENSERAZIDE\LEVODOPA
     Indication: PRODUCT USED FOR UNKNOWN INDICATION
     Dosage: FORM STRENGTH: 200MG/ 50MG; UNIT DOSE:0.25 TABLET
  12. DUODOPA [Suspect]
     Active Substance: CARBIDOPA\LEVODOPA
     Indication: PARKINSON^S DISEASE
     Dosage: AM DOSE= 12ML, CONTIN DOSE= 3.4ML/H DURING 16HRS, EXTRA DOSE= 3ML
     Route: 050
     Dates: start: 20130128, end: 20130130
  13. DUODOPA [Suspect]
     Active Substance: CARBIDOPA\LEVODOPA
     Dosage: DOSAGE CONTINUOUSLY MONITORED AND ADJUSTED
     Route: 050
     Dates: start: 20130130, end: 20130313
  14. DUODOPA [Suspect]
     Active Substance: CARBIDOPA\LEVODOPA
     Dosage: AM=14ML; CD=3.4ML/HR DURING 16HRS; ED=3ML
     Route: 050
     Dates: start: 20151221, end: 20151223
  15. SEROQUEL [Concomitant]
     Active Substance: QUETIAPINE FUMARATE
     Indication: PRODUCT USED FOR UNKNOWN INDICATION
  16. DUODOPA [Suspect]
     Active Substance: CARBIDOPA\LEVODOPA
     Dosage: AM= 12ML; CD=3.4ML/HR DURING 16HRS; ED=3ML
     Route: 050
     Dates: start: 20151223, end: 20160105

REACTIONS (17)
  - Eating disorder [Unknown]
  - Gastrointestinal motility disorder [Unknown]
  - Plasma cell myeloma [Fatal]
  - Hospitalisation [Unknown]
  - Confusional state [Unknown]
  - Stoma site hypergranulation [Unknown]
  - Decreased appetite [Not Recovered/Not Resolved]
  - Social problem [Unknown]
  - Apathy [Unknown]
  - Pain [Unknown]
  - Tooth extraction [Unknown]
  - Diarrhoea [Unknown]
  - Weight decreased [Not Recovered/Not Resolved]
  - Cachexia [Unknown]
  - Somnolence [Unknown]
  - General physical health deterioration [Unknown]
  - Aggression [Unknown]

NARRATIVE: CASE EVENT DATE: 20160114
